FAERS Safety Report 20772738 (Version 1)
Quarter: 2022Q2

REPORT INFORMATION
  Report Type: Report from Study
  Country: MX (occurrence: MX)
  Receive Date: 20220502
  Receipt Date: 20220502
  Transmission Date: 20220721
  Serious: Yes (Other)
  Sender: FDA-Public Use
  Company Number: MX-NOVARTISPH-NVSC2022MX100263

PATIENT
  Sex: Female

DRUGS (3)
  1. EXFORGE HCT [Suspect]
     Active Substance: AMLODIPINE BESYLATE\HYDROCHLOROTHIAZIDE\VALSARTAN
     Indication: Hypertension
     Dosage: 1 DOSAGE FORM, QD (5/160/12.5MG)
     Route: 048
     Dates: start: 2019
  2. PREGABALIN [Concomitant]
     Active Substance: PREGABALIN
     Indication: Pain
     Dosage: 150 MG, QD (1 DF)
     Route: 048
     Dates: start: 2016
  3. PREGABALIN [Concomitant]
     Active Substance: PREGABALIN
     Indication: Gout

REACTIONS (16)
  - Erysipelas [Unknown]
  - Memory impairment [Unknown]
  - Illness [Unknown]
  - Myalgia [Unknown]
  - Gait disturbance [Unknown]
  - Erythema [Unknown]
  - Peripheral swelling [Not Recovered/Not Resolved]
  - Pain in extremity [Unknown]
  - Feeling hot [Unknown]
  - Muscle spasms [Unknown]
  - Depression [Unknown]
  - Cough [Recovered/Resolved]
  - Productive cough [Unknown]
  - Renal disorder [Unknown]
  - Hypertension [Not Recovered/Not Resolved]
  - Blood pressure inadequately controlled [Unknown]

NARRATIVE: CASE EVENT DATE: 20210101
